FAERS Safety Report 8288665-8 (Version None)
Quarter: 2012Q2

REPORT INFORMATION
  Report Type: 
  Country: None (occurrence: None)
  Receive Date: 20120417
  Receipt Date: 20120410
  Transmission Date: 20120825
  Serious: Yes (Hospitalization)
  Sender: FDA-Public Use
  Company Number: US-AMGEN-USASP2012019054

PATIENT
  Sex: Male

DRUGS (11)
  1. DEXAMETHASONE [Suspect]
     Indication: NON-HODGKIN'S LYMPHOMA
     Dosage: 40 MG, UNK
     Route: 048
     Dates: start: 20120217, end: 20120222
  2. VINCRISTINE [Suspect]
     Indication: NON-HODGKIN'S LYMPHOMA
     Dosage: 2 MG, UNK
     Route: 042
     Dates: start: 20120217, end: 20120222
  3. DOXORUBICIN HCL [Suspect]
     Indication: NON-HODGKIN'S LYMPHOMA
     Dosage: 56.5 MG, UNK
     Route: 042
     Dates: start: 20120217, end: 20120222
  4. CIPROFLOXACIN HYDROCHLORIDE [Concomitant]
  5. RITUXIMAB [Suspect]
     Indication: NON-HODGKIN'S LYMPHOMA
     Dosage: 787.5 MG, UNK
     Route: 042
     Dates: start: 20120217, end: 20120222
  6. CYCLOPHOSPHAMIDE [Suspect]
     Indication: NON-HODGKIN'S LYMPHOMA
     Dosage: 630 MG, Q12H
     Route: 042
     Dates: start: 20120217, end: 20120222
  7. FLUCONAZOLE [Concomitant]
  8. MS CONTIN [Concomitant]
  9. VALTREX [Concomitant]
  10. PEGFILGRASTIM [Suspect]
     Indication: NON-HODGKIN'S LYMPHOMA
     Route: 058
  11. METOPROLOL [Concomitant]

REACTIONS (2)
  - FEBRILE NEUTROPENIA [None]
  - DEEP VEIN THROMBOSIS [None]
